FAERS Safety Report 10147110 (Version 1)
Quarter: 2014Q2

REPORT INFORMATION
  Report Type: Spontaneous
  Country: US (occurrence: US)
  Receive Date: 20140501
  Receipt Date: 20140501
  Transmission Date: 20141212
  Serious: Yes (Death, Disabling, Other)
  Sender: FDA-Public Use
  Company Number: US-MERCK-1404USA015427

PATIENT
  Sex: Male

DRUGS (4)
  1. JANUVIA [Suspect]
     Indication: TYPE 2 DIABETES MELLITUS
     Dosage: UNK
     Route: 048
     Dates: start: 20070603, end: 200911
  2. JANUVIA [Suspect]
     Dosage: UNK
     Route: 048
     Dates: start: 200706, end: 201203
  3. ONGLYZA [Suspect]
     Indication: TYPE 2 DIABETES MELLITUS
     Dosage: UNK
     Dates: start: 20091124, end: 201203
  4. ONGLYZA [Suspect]
     Dosage: UNK
     Dates: start: 200706, end: 201203

REACTIONS (1)
  - Pancreatic carcinoma [Fatal]
